FAERS Safety Report 9807328 (Version 1)
Quarter: 2014Q1

REPORT INFORMATION
  Report Type: Spontaneous
  Country: ES (occurrence: ES)
  Receive Date: 20140110
  Receipt Date: 20140110
  Transmission Date: 20141002
  Serious: Yes (Death)
  Sender: FDA-Public Use
  Company Number: ES-ROCHE-1331418

PATIENT
  Age: 81 Year
  Sex: Male

DRUGS (1)
  1. XELODA [Suspect]
     Indication: COLORECTAL CANCER
     Route: 048
     Dates: start: 20131111, end: 20131124

REACTIONS (4)
  - Febrile neutropenia [Fatal]
  - Diarrhoea [Fatal]
  - Mucosal inflammation [Fatal]
  - Thrombocytopenia [Fatal]
